FAERS Safety Report 22638102 (Version 1)
Quarter: 2023Q2

REPORT INFORMATION
  Report Type: Spontaneous
  Country: FR (occurrence: FR)
  Receive Date: 20230626
  Receipt Date: 20230626
  Transmission Date: 20230721
  Serious: Yes (Life-Threatening, Other)
  Sender: FDA-Public Use
  Company Number: None

PATIENT
  Age: 43 Year
  Sex: Male
  Weight: 71 kg

DRUGS (1)
  1. AUBAGIO [Suspect]
     Active Substance: TERIFLUNOMIDE
     Indication: Multiple sclerosis
     Dosage: 14 MG (DOSE 1), TOTAL
     Route: 048
     Dates: start: 201604, end: 20221121

REACTIONS (1)
  - Extragonadal primary germ cell tumour [Not Recovered/Not Resolved]

NARRATIVE: CASE EVENT DATE: 20221010
